FAERS Safety Report 8725700 (Version 2)
Quarter: 2012Q4

REPORT INFORMATION
  Report Type: 
  Country: US (occurrence: US)
  Receive Date: 20120815
  Receipt Date: 20120911
  Transmission Date: 20130627
  Serious: Yes (Hospitalization)
  Sender: FDA-Public Use
  Company Number: US-RB-043306-12

PATIENT
  Age: 33 Year
  Sex: Female

DRUGS (1)
  1. SUBOXONE TABLET [Suspect]
     Indication: DRUG DEPENDENCE
     Route: 060
     Dates: start: 2010, end: 201204

REACTIONS (4)
  - Fall [Recovered/Resolved]
  - Clavicle fracture [Recovered/Resolved]
  - Wrist fracture [Recovered/Resolved]
  - Pain [Recovered/Resolved]
